FAERS Safety Report 15610509 (Version 1)
Quarter: 2018Q4

REPORT INFORMATION
  Report Type: Spontaneous
  Country: US (occurrence: US)
  Receive Date: 20181113
  Receipt Date: 20181113
  Transmission Date: 20190205
  Serious: Yes (Hospitalization)
  Sender: FDA-Public Use
  Company Number: US-ROCHE-2012164

PATIENT
  Sex: Male
  Weight: 45.85 kg

DRUGS (5)
  1. CHOLESTIN [Concomitant]
     Route: 048
     Dates: start: 20170509
  2. PULMOZYME [Suspect]
     Active Substance: DORNASE ALFA
     Indication: CYSTIC FIBROSIS
     Dosage: 1MG/ML 2.5 ML, 1 AMPOULE VIA NEBULIZER ONC
     Route: 050
     Dates: start: 20061107
  3. VANCOMYCIN [Concomitant]
     Active Substance: VANCOMYCIN
     Route: 042
     Dates: start: 20170509
  4. ORKAMBI [Concomitant]
     Active Substance: IVACAFTOR\LUMACAFTOR
     Route: 048
     Dates: start: 20170509
  5. NEXIUM [Concomitant]
     Active Substance: ESOMEPRAZOLE MAGNESIUM
     Route: 048
     Dates: start: 20170509

REACTIONS (1)
  - Viral infection [Recovered/Resolved]
